FAERS Safety Report 25221648 (Version 1)
Quarter: 2025Q2

REPORT INFORMATION
  Report Type: Spontaneous
  Country: US (occurrence: US)
  Receive Date: 20250421
  Receipt Date: 20250421
  Transmission Date: 20250717
  Serious: No
  Sender: PFIZER
  Company Number: US-PFIZER INC-202500082911

PATIENT
  Age: 57 Year
  Sex: Female

DRUGS (8)
  1. IBRANCE [Suspect]
     Active Substance: PALBOCICLIB
     Route: 048
     Dates: start: 20250401
  2. LORAZEPAM [Concomitant]
     Active Substance: LORAZEPAM
  3. FASLODEX [Concomitant]
     Active Substance: FULVESTRANT
  4. CALCIUM\CHOLECALCIFEROL [Concomitant]
     Active Substance: CALCIUM\CHOLECALCIFEROL
  5. CITALOPRAM [Concomitant]
     Active Substance: CITALOPRAM
  6. ENALAPRIL [Concomitant]
     Active Substance: ENALAPRIL
  7. NAPROXEN [Concomitant]
     Active Substance: NAPROXEN
  8. HYDROCHLOROTHIAZIDE [Concomitant]
     Active Substance: HYDROCHLOROTHIAZIDE

REACTIONS (1)
  - Arthralgia [Recovering/Resolving]

NARRATIVE: CASE EVENT DATE: 20250401
